FAERS Safety Report 13505409 (Version 2)
Quarter: 2017Q2

REPORT INFORMATION
  Report Type: Report from Study
  Country: US (occurrence: US)
  Receive Date: 20170502
  Receipt Date: 20170511
  Transmission Date: 20170830
  Serious: Yes (Hospitalization, Congenital Anomaly)
  Sender: FDA-Public Use
  Company Number: US-ACTELION-A-NJ2017-153310

PATIENT
  Age: 34 Month
  Sex: Male

DRUGS (12)
  1. VITAMIN D3 [Concomitant]
     Active Substance: CHOLECALCIFEROL
     Dosage: 1 ML (400 IU), QD
     Route: 048
     Dates: start: 20170106
  2. NEXIUM [Concomitant]
     Active Substance: ESOMEPRAZOLE MAGNESIUM
     Dosage: 10 MG, BID BEFORE MEALS
     Route: 048
     Dates: start: 20161216
  3. OXYGEN. [Concomitant]
     Active Substance: OXYGEN
  4. BENADRYL [Concomitant]
     Active Substance: DIPHENHYDRAMINE HYDROCHLORIDE
     Dosage: 12.5 MG, TID
     Dates: start: 20170204, end: 20170204
  5. OMEPRAZOLE. [Concomitant]
     Active Substance: OMEPRAZOLE
     Dosage: 12.6 MG, QD
     Route: 048
     Dates: start: 20170204, end: 20170204
  6. TRACLEER [Suspect]
     Active Substance: BOSENTAN
     Indication: PULMONARY HYPERTENSION
     Dosage: 12.5 MG, BID
     Route: 048
  7. SILDENAFIL CITRATE. [Concomitant]
     Active Substance: SILDENAFIL CITRATE
     Dosage: 1 ML (10MG), Q6HRS
     Route: 049
     Dates: start: 20161011
  8. PROVENTIL [Concomitant]
     Active Substance: ALBUTEROL
     Dosage: UNK, PRN
  9. PROVENTIL [Concomitant]
     Active Substance: ALBUTEROL
     Dosage: 0.5 ML (2.5MG TOTAL), Q4HRS
     Route: 045
     Dates: start: 20170204
  10. TRACLEER [Suspect]
     Active Substance: BOSENTAN
     Dosage: 6MG/ML(12 MG), BID
     Route: 048
  11. AUGMENTIN [Concomitant]
     Active Substance: AMOXICILLIN\CLAVULANATE POTASSIUM
     Dosage: 7.1 ML (568MG TOTAL), BID
     Route: 048
     Dates: start: 20170204, end: 20170208
  12. PULMICORT TURBUHALER [Concomitant]
     Active Substance: BUDESONIDE
     Dosage: 2 ML (0.5MG TOTAL), BID
     Route: 045
     Dates: start: 20170106

REACTIONS (19)
  - Bradycardia [Recovering/Resolving]
  - Dry skin [Unknown]
  - Hypoxia [Unknown]
  - Cough [Unknown]
  - Developmental delay [Unknown]
  - Body height below normal [Unknown]
  - Pneumonia [Unknown]
  - Vomiting [Unknown]
  - Oxygen saturation decreased [Unknown]
  - Secretion discharge [Unknown]
  - Talipes [Unknown]
  - Gastrooesophageal reflux disease [Unknown]
  - Obstructive airways disorder [Unknown]
  - Rhinorrhoea [Unknown]
  - Body temperature increased [Unknown]
  - Hypospadias [Unknown]
  - Heart rate decreased [Recovering/Resolving]
  - Acute respiratory failure [Unknown]
  - Viral upper respiratory tract infection [Unknown]

NARRATIVE: CASE EVENT DATE: 20151001
